FAERS Safety Report 24223503 (Version 2)
Quarter: 2024Q4

REPORT INFORMATION
  Report Type: Spontaneous
  Country: US (occurrence: US)
  Receive Date: 20240819
  Receipt Date: 20241002
  Transmission Date: 20250115
  Serious: No
  Sender: BAYER
  Company Number: US-BAYER-2024A117138

PATIENT
  Age: 26 Year
  Sex: Female

DRUGS (1)
  1. KYLEENA [Suspect]
     Active Substance: LEVONORGESTREL
     Indication: Contraception
     Dosage: 17.5?G/DAY
     Route: 015
     Dates: start: 202403, end: 20240812

REACTIONS (2)
  - Abdominal pain lower [None]
  - Device expulsion [Recovered/Resolved]

NARRATIVE: CASE EVENT DATE: 20240101
